FAERS Safety Report 7997444-8 (Version None)
Quarter: 2011Q4

REPORT INFORMATION
  Report Type: 
  Country: None (occurrence: None)
  Receive Date: 20111221
  Receipt Date: 20111219
  Transmission Date: 20120403
  Serious: Yes (Death)
  Sender: FDA-Public Use
  Company Number: DE-ROCHE-1014005

PATIENT
  Age: 73 Year
  Sex: Male
  Weight: 107 kg

DRUGS (16)
  1. PANTOPRAZOLE [Concomitant]
     Route: 048
  2. HAEMOPROTECT [Concomitant]
     Route: 048
  3. DEXAMETHASONE [Concomitant]
     Route: 042
     Dates: start: 20110317, end: 20110421
  4. SPIRONOLACTONE [Concomitant]
     Indication: CARDIAC FAILURE
     Route: 048
  5. VERGENTAN [Concomitant]
     Route: 048
     Dates: start: 20110317, end: 20110421
  6. XELODA [Suspect]
     Indication: COLON CANCER
     Dosage: THIRD CYCLE RECIEVED ON 13/MAY/2011
  7. BISOPROLOL FUMARATE [Concomitant]
     Indication: HYPERTENSION
     Route: 048
  8. ENALAPRIL MALEATE [Concomitant]
     Route: 048
  9. AVODART [Concomitant]
     Indication: BENIGN PROSTATIC HYPERPLASIA
     Route: 048
  10. TAMSULOSIN HCL [Concomitant]
     Indication: BENIGN PROSTATIC HYPERPLASIA
     Route: 048
  11. SIMVASTATIN [Concomitant]
     Route: 048
  12. THYROXIN [Concomitant]
     Indication: HYPOTHYROIDISM
     Route: 048
  13. MARCUMAR [Concomitant]
     Route: 048
  14. ONDANSETRON [Concomitant]
     Route: 042
     Dates: start: 20110317, end: 20110421
  15. HYDROCHLOROTHIAZIDE [Concomitant]
     Indication: HYPERTENSION
     Route: 048
  16. METFORMIN HYDROCHLORIDE [Concomitant]
     Indication: TYPE 2 DIABETES MELLITUS
     Route: 048

REACTIONS (2)
  - GENERAL PHYSICAL HEALTH DETERIORATION [None]
  - PNEUMONIA [None]
